FAERS Safety Report 16880869 (Version 1)
Quarter: 2019Q4

REPORT INFORMATION
  Report Type: Spontaneous
  Country: US (occurrence: US)
  Receive Date: 20191003
  Receipt Date: 20191003
  Transmission Date: 20200122
  Serious: No
  Sender: FDA-Public Use
  Company Number: US-PFIZER INC-2019422250

PATIENT
  Age: 61 Year
  Sex: Female

DRUGS (11)
  1. LIDOCAINE. [Concomitant]
     Active Substance: LIDOCAINE
     Dosage: UNK
  2. PREDNISONE. [Concomitant]
     Active Substance: PREDNISONE
     Dosage: UNK
  3. ALPRAZOLAM. [Concomitant]
     Active Substance: ALPRAZOLAM
     Dosage: UNK
  4. LEFLUNOMIDE. [Concomitant]
     Active Substance: LEFLUNOMIDE
     Dosage: UNK
  5. SULFASALAZINE. [Concomitant]
     Active Substance: SULFASALAZINE
     Dosage: UNK
  6. XELJANZ XR [Suspect]
     Active Substance: TOFACITINIB CITRATE
     Dosage: 11 MG, DAILY
     Route: 048
  7. NAPROXEN. [Concomitant]
     Active Substance: NAPROXEN
     Dosage: UNK
  8. HYDROXYCHLOROQUINE SULFATE. [Concomitant]
     Active Substance: HYDROXYCHLOROQUINE SULFATE
     Dosage: UNK
  9. MYRBETRIQ [Concomitant]
     Active Substance: MIRABEGRON
     Dosage: UNK
  10. BUTALBITAL AND ACETAMINOPHEN [Concomitant]
     Active Substance: ACETAMINOPHEN\BUTALBITAL
     Dosage: UNK
  11. DULOXETINE. [Concomitant]
     Active Substance: DULOXETINE
     Dosage: UNK

REACTIONS (2)
  - Nasopharyngitis [Unknown]
  - Viral infection [Unknown]
